FAERS Safety Report 6411788-2 (Version None)
Quarter: 2009Q4

REPORT INFORMATION
  Report Type: 
  Country: None (occurrence: None)
  Receive Date: 20091020
  Receipt Date: 20091016
  Transmission Date: 20100525
  Serious: No
  Sender: FDA-Public Use
  Company Number: 20097473

PATIENT
  Sex: Male

DRUGS (1)
  1. LIORESAL [Suspect]
     Indication: MUSCLE SPASTICITY
     Dosage: 120 MCG, DAILY, INTRATHECAL
     Route: 037

REACTIONS (10)
  - CATHETER SITE PAIN [None]
  - DRUG WITHDRAWAL SYNDROME [None]
  - HAEMATOMA [None]
  - HYPERTONIA [None]
  - INFECTION [None]
  - OEDEMA [None]
  - PAIN [None]
  - PYREXIA [None]
  - SEROMA [None]
  - WOUND DEHISCENCE [None]
